FAERS Safety Report 20128251 (Version 2)
Quarter: 2022Q4

REPORT INFORMATION
  Report Type: Spontaneous
  Country: JP (occurrence: JP)
  Receive Date: 20211129
  Receipt Date: 20221107
  Transmission Date: 20230113
  Serious: Yes (Hospitalization, Other)
  Sender: FDA-Public Use
  Company Number: JP-BRISTOL-MYERS SQUIBB COMPANY-BMS-2021-056675

PATIENT
  Age: 67 Year
  Sex: Male

DRUGS (1)
  1. NIVOLUMAB [Suspect]
     Active Substance: NIVOLUMAB
     Indication: Malignant melanoma
     Dosage: UNK
     Route: 041

REACTIONS (4)
  - Fulminant type 1 diabetes mellitus [Unknown]
  - Hypothyroidism [Unknown]
  - Secondary adrenocortical insufficiency [Unknown]
  - Adrenocorticotropic hormone deficiency [Unknown]
